FAERS Safety Report 4392976-6 (Version None)
Quarter: 2004Q3

REPORT INFORMATION
  Report Type: 
  Country: None (occurrence: None)
  Receive Date: 20040702
  Receipt Date: 20040420
  Transmission Date: 20050211
  Serious: Yes (Other)
  Sender: FDA-Public Use
  Company Number: 2004UW07979

PATIENT
  Age: 56 Year
  Sex: Male
  Weight: 97.5234 kg

DRUGS (9)
  1. CRESTOR [Suspect]
     Indication: HYPERCHOLESTEROLAEMIA
     Dosage: 20 MG QD; PO
     Route: 048
     Dates: start: 20040401
  2. CRESTOR [Suspect]
     Indication: HYPERCHOLESTEROLAEMIA
     Dosage: 10 MG QD; PO
     Route: 048
     Dates: start: 20040301, end: 20040401
  3. HYDROCHLOROTHIAZIDE [Concomitant]
  4. LISINOPRIL [Concomitant]
  5. GLIPIZIDE [Concomitant]
  6. METOPROLOL [Concomitant]
  7. FELODIPINE [Concomitant]
  8. ASPIRIN [Concomitant]
  9. .... [Concomitant]

REACTIONS (1)
  - PIGMENTED NAEVUS [None]
